FAERS Safety Report 5142042-7 (Version None)
Quarter: 2006Q4

REPORT INFORMATION
  Report Type: 
  Country: None (occurrence: None)
  Receive Date: 20061102
  Receipt Date: 20060705
  Transmission Date: 20070319
  Serious: Yes (Death)
  Sender: FDA-Public Use
  Company Number: US-AMGEN-US180306

PATIENT
  Sex: Female

DRUGS (5)
  1. PANITUMUMAB [Suspect]
     Indication: COLORECTAL CANCER
     Route: 042
     Dates: start: 20060317
  2. AVASTIN [Concomitant]
     Route: 042
  3. FOLINIC ACID [Concomitant]
     Route: 042
  4. FLUOROURACIL [Concomitant]
     Route: 042
  5. OXALIPLATIN [Concomitant]
     Route: 042

REACTIONS (2)
  - ARRHYTHMIA [None]
  - DYSPNOEA [None]
